FAERS Safety Report 24440746 (Version 2)
Quarter: 2024Q4

REPORT INFORMATION
  Report Type: Report from Study
  Country: MX (occurrence: MX)
  Receive Date: 20241016
  Receipt Date: 20241017
  Transmission Date: 20250115
  Serious: No
  Sender: ROCHE
  Company Number: MX-ROCHE-3300376

PATIENT
  Age: 3 Year
  Sex: Male
  Weight: 17.2 kg

DRUGS (1)
  1. HEMLIBRA [Suspect]
     Active Substance: EMICIZUMAB-KXWH
     Indication: Haemophilia A with anti factor VIII
     Dosage: 60 MG/0.4 ML?DATE OF LAST DOSE OF HEMLIBRA: 04/FEB/2024
     Route: 058
     Dates: start: 20200611

REACTIONS (3)
  - Off label use [Unknown]
  - Anti factor VIII antibody increased [Unknown]
  - Incorrect dose administered [Unknown]

NARRATIVE: CASE EVENT DATE: 20220101
